FAERS Safety Report 12447690 (Version 3)
Quarter: 2016Q2

REPORT INFORMATION
  Report Type: Spontaneous
  Country: FR (occurrence: FR)
  Receive Date: 20160608
  Receipt Date: 20160629
  Transmission Date: 20160815
  Serious: Yes (Hospitalization, Other)
  Sender: FDA-Public Use
  Company Number: FR-JAZZ-2016-FR-010302

PATIENT
  Age: 58 Year
  Sex: Male
  Weight: 77 kg

DRUGS (15)
  1. MORPHINE [Suspect]
     Active Substance: MORPHINE
     Indication: NEURALGIA
     Dosage: UNK MG, QH
     Route: 037
     Dates: start: 2014
  2. KETAMINE [Suspect]
     Active Substance: KETAMINE
     Dosage: 85 MG, TID
     Dates: start: 20150617, end: 20150617
  3. PRIALT [Suspect]
     Active Substance: ZICONOTIDE ACETATE
     Indication: NEURALGIA
     Dosage: UNK ?G, QH
     Route: 037
     Dates: start: 2014
  4. KETAMINE [Suspect]
     Active Substance: KETAMINE
     Dosage: 85 MG, TID
     Dates: start: 20150708, end: 20150708
  5. CYMBALTA [Suspect]
     Active Substance: DULOXETINE HYDROCHLORIDE
     Indication: NEURALGIA
     Dosage: UNK
     Dates: end: 201509
  6. KALEORID LP [Concomitant]
     Active Substance: POTASSIUM CHLORIDE
     Indication: HYPOKALAEMIA
  7. BACLOFEN. [Suspect]
     Active Substance: BACLOFEN
     Indication: NEURALGIA
     Dosage: UNK ?G, QH
     Route: 037
     Dates: start: 2014
  8. LYRICA [Suspect]
     Active Substance: PREGABALIN
     Indication: NEURALGIA
     Dosage: 150 MG, BID
     Route: 048
     Dates: end: 20151112
  9. VERSATIS [Suspect]
     Active Substance: LIDOCAINE
     Indication: NEURALGIA
     Dosage: 1 IU, UNK
     Route: 042
     Dates: end: 20151112
  10. KETAMINE [Suspect]
     Active Substance: KETAMINE
     Indication: NEURALGIA
     Dosage: 85 MG, TID
     Dates: start: 20150610, end: 20150610
  11. KETAMINE [Suspect]
     Active Substance: KETAMINE
     Dosage: 85 MG, TID
     Dates: start: 20150622, end: 20150622
  12. KETAMINE [Suspect]
     Active Substance: KETAMINE
     Dosage: 85 MG, TID
     Dates: start: 20150702, end: 20150702
  13. NAROPEINE [Suspect]
     Active Substance: ROPIVACAINE HYDROCHLORIDE
     Indication: NEURALGIA
     Dosage: UNK MG, QH
     Route: 037
     Dates: start: 2014
  14. NORSET [Suspect]
     Active Substance: MIRTAZAPINE
     Indication: NEURALGIA
     Dosage: 15 MG, QD
     Route: 048
     Dates: start: 201509, end: 20151112
  15. TRANSIPEG [Concomitant]
     Active Substance: POLYETHYLENE GLYCOL 3350
     Indication: CONSTIPATION
     Dosage: UNK

REACTIONS (6)
  - Confusional state [Recovered/Resolved]
  - Sepsis [Recovered/Resolved]
  - Asthenia [Recovered/Resolved]
  - Pneumonia escherichia [Recovered/Resolved]
  - Somnolence [Recovered/Resolved]
  - Overdose [Unknown]

NARRATIVE: CASE EVENT DATE: 20151112
